FAERS Safety Report 23235676 (Version 5)
Quarter: 2024Q3

REPORT INFORMATION
  Report Type: Spontaneous
  Country: US (occurrence: US)
  Receive Date: 20231128
  Receipt Date: 20240711
  Transmission Date: 20241016
  Serious: No
  Sender: PFIZER
  Company Number: US-PFIZER INC-202300377216

PATIENT
  Age: 74 Year
  Sex: Female
  Weight: 52.16 kg

DRUGS (2)
  1. IBRANCE [Suspect]
     Active Substance: PALBOCICLIB
     Indication: Breast cancer female
     Dosage: 1 TABLET DAILY, TAKE 3 WEEKS ON, 1 WEEK OFF PER CYCLE
     Route: 048
     Dates: start: 20231106
  2. IBRANCE [Suspect]
     Active Substance: PALBOCICLIB
     Dosage: 2 WEEKS ON 2 WEEKS OFF

REACTIONS (4)
  - Cough [Not Recovered/Not Resolved]
  - Myalgia [Not Recovered/Not Resolved]
  - Eyelids pruritus [Not Recovered/Not Resolved]
  - Laboratory test abnormal [Unknown]

NARRATIVE: CASE EVENT DATE: 20231101
